FAERS Safety Report 15377131 (Version 1)
Quarter: 2018Q3

REPORT INFORMATION
  Report Type: Spontaneous
  Country: US (occurrence: US)
  Receive Date: 20180905
  Receipt Date: 20180905
  Transmission Date: 20181010
  Serious: Yes (Other)
  Sender: FDA-Public Use
  Company Number: None

PATIENT
  Age: 42 Year
  Sex: Female

DRUGS (2)
  1. CVS SALINE NASAL MIST [Concomitant]
     Dates: start: 20180813, end: 20180902
  2. CVS SALINE NASAL MIST [Suspect]
     Active Substance: SODIUM CHLORIDE
     Route: 045
     Dates: start: 20180805, end: 20180901

REACTIONS (4)
  - Product contamination microbial [None]
  - Malaise [None]
  - Product use issue [None]
  - Pneumonia [None]

NARRATIVE: CASE EVENT DATE: 20180827
